FAERS Safety Report 5401195-3 (Version None)
Quarter: 2007Q3

REPORT INFORMATION
  Report Type: 
  Country: None (occurrence: None)
  Receive Date: 20070731
  Receipt Date: 20070720
  Transmission Date: 20080115
  Serious: Yes (Hospitalization)
  Sender: FDA-Public Use
  Company Number: US-AMGEN-STX235235

PATIENT
  Sex: Male

DRUGS (1)
  1. ENBREL [Suspect]
     Indication: PSORIASIS
     Route: 065
     Dates: start: 20050101, end: 20060901

REACTIONS (3)
  - CELLULITIS [None]
  - GRANULOMA SKIN [None]
  - SUBCUTANEOUS ABSCESS [None]
